FAERS Safety Report 9143999 (Version 2)
Quarter: 2013Q1

REPORT INFORMATION
  Report Type: Spontaneous
  Country: US (occurrence: US)
  Receive Date: 20130306
  Receipt Date: 20130320
  Transmission Date: 20140127
  Serious: No
  Sender: FDA-Public Use
  Company Number: US-PFIZER INC-2013077183

PATIENT
  Sex: Female

DRUGS (4)
  1. GABAPENTIN [Suspect]
     Dosage: UNK
     Dates: start: 201301, end: 2013
  2. AMLODIPINE [Concomitant]
     Dosage: UNK
  3. CLONAZEPAM [Concomitant]
     Dosage: UNK
  4. HYDROCODONE [Concomitant]
     Dosage: UNK

REACTIONS (4)
  - Urticaria [Unknown]
  - Abdominal pain upper [Unknown]
  - Tremor [Unknown]
  - Drug ineffective [Unknown]
